FAERS Safety Report 5682860-X (Version None)
Quarter: 2008Q1

REPORT INFORMATION
  Report Type: 
  Country: None (occurrence: None)
  Receive Date: 20080327
  Receipt Date: 20080327
  Transmission Date: 20080703
  Serious: Yes (Hospitalization)
  Sender: FDA-Public Use
  Company Number: B0513227A

PATIENT
  Age: 63 Year
  Sex: Male

DRUGS (3)
  1. ELONTRIL [Suspect]
     Indication: MAJOR DEPRESSION
     Dosage: 600MG PER DAY
     Route: 048
  2. ANAFRANIL [Suspect]
     Indication: MAJOR DEPRESSION
     Dosage: 300MG PER DAY
     Route: 048
  3. ALCOHOL [Concomitant]
     Route: 065

REACTIONS (4)
  - CONVULSION [None]
  - HYPOTONIA [None]
  - LOSS OF CONSCIOUSNESS [None]
  - MANIA [None]
